FAERS Safety Report 12497853 (Version 1)
Quarter: 2016Q2

REPORT INFORMATION
  Report Type: Spontaneous
  Country: GB (occurrence: GB)
  Receive Date: 20160625
  Receipt Date: 20160625
  Transmission Date: 20160815
  Serious: Yes (Other)
  Sender: FDA-Public Use
  Company Number: GB-APOTEX-2016AP009429

PATIENT

DRUGS (5)
  1. PAROXETINE ORAL SOLUTION [Suspect]
     Active Substance: PAROXETINE
     Indication: PRODUCT USED FOR UNKNOWN INDICATION
     Dosage: 10MG/5ML
     Route: 048
  2. THYROXINE [Concomitant]
     Active Substance: LEVOTHYROXINE
     Indication: HYPOTHYROIDISM
     Dosage: UNK
     Route: 065
     Dates: start: 2005
  3. CITALOPRAM [Concomitant]
     Active Substance: CITALOPRAM HYDROBROMIDE
     Indication: DEPRESSION
     Dosage: UNK
     Route: 065
     Dates: start: 200610, end: 200610
  4. PAROXETINE. [Suspect]
     Active Substance: PAROXETINE
     Indication: PRODUCT USED FOR UNKNOWN INDICATION
     Dosage: 20 MG, UNK
     Route: 065
     Dates: start: 19970910
  5. PAXIL [Suspect]
     Active Substance: PAROXETINE HYDROCHLORIDE
     Indication: POSTPARTUM DEPRESSION
     Dosage: 20 MG, QD
     Route: 065
     Dates: start: 1991, end: 20010205

REACTIONS (42)
  - Nausea [Unknown]
  - Influenza [Unknown]
  - Aggression [Unknown]
  - Disturbance in attention [Unknown]
  - Hyperhidrosis [Unknown]
  - Loss of libido [Unknown]
  - Fatigue [Unknown]
  - Weight decreased [Unknown]
  - Sexual inhibition [Unknown]
  - Hypomania [Unknown]
  - Asthenia [Unknown]
  - Headache [Unknown]
  - Phobia [Unknown]
  - Dyspnoea [Unknown]
  - Fatigue [Unknown]
  - Alopecia [Unknown]
  - Mood altered [Unknown]
  - Flushing [Unknown]
  - Abnormal dreams [Unknown]
  - Chest discomfort [Unknown]
  - Drug withdrawal syndrome [Unknown]
  - Lethargy [Unknown]
  - Palpitations [Unknown]
  - Sleep disorder [Unknown]
  - Hypoaesthesia [Unknown]
  - Paraesthesia [Unknown]
  - Suicidal ideation [Unknown]
  - Agitation [Unknown]
  - Irritability [Unknown]
  - Anxiety [Unknown]
  - Confusional state [Unknown]
  - Myalgia [Unknown]
  - Pain [Unknown]
  - Muscle spasms [Unknown]
  - Tinnitus [Unknown]
  - Personality change [Unknown]
  - Weight increased [Unknown]
  - Alopecia [Unknown]
  - Hypoacusis [Unknown]
  - Drug dependence [Unknown]
  - Nightmare [Unknown]
  - Arthralgia [Unknown]

NARRATIVE: CASE EVENT DATE: 200404
